FAERS Safety Report 8572145-6 (Version None)
Quarter: 2012Q3

REPORT INFORMATION
  Report Type: 
  Country: None (occurrence: None)
  Receive Date: 20120724
  Receipt Date: 20120710
  Transmission Date: 20120928
  Serious: Yes (Other)
  Sender: FDA-Public Use
  Company Number: JP-2012-15809

PATIENT
  Age: 61 Year
  Sex: Male
  Weight: 58 kg

DRUGS (5)
  1. HANP (CARPERITIDE) INJECTION [Concomitant]
  2. FUROSEMIDE (FUROSEMIDE) INJECTION [Concomitant]
  3. FUROSEMIDE (FUROSEMIDE) INJECTION [Concomitant]
  4. SAMSCA [Suspect]
     Indication: FLUID RETENTION
     Dosage: 15 MG MILLIGRAM(S), QAM, ORAL
     Route: 048
     Dates: start: 20120427, end: 20120605
  5. SPIRONOLACTONE [Concomitant]

REACTIONS (2)
  - BLOOD UREA INCREASED [None]
  - HYPOTENSION [None]
